FAERS Safety Report 14559113 (Version 3)
Quarter: 2018Q3

REPORT INFORMATION
  Report Type: Spontaneous
  Country: AU (occurrence: AU)
  Receive Date: 20180221
  Receipt Date: 20180829
  Transmission Date: 20181010
  Serious: Yes (Disabling)
  Sender: FDA-Public Use
  Company Number: PHHY2018AU024353

PATIENT
  Sex: Female
  Weight: 4.34 kg

DRUGS (2)
  1. GILENYA [Suspect]
     Active Substance: FINGOLIMOD HYDROCHLORIDE
     Indication: FOETAL EXPOSURE DURING PREGNANCY
     Dosage: (MATERNAL DOSE: 0.5MG QD)
     Route: 064
  2. DEXAMPHETAMINE [Concomitant]
     Active Substance: AMPHETAMINE
     Indication: FOETAL EXPOSURE DURING PREGNANCY
     Dosage: MATERNAL DOSE: 5 MG, QD
     Route: 064

REACTIONS (3)
  - Ventricular septal defect [Unknown]
  - Macrosomia [Unknown]
  - Foetal exposure during pregnancy [Unknown]
